FAERS Safety Report 8884062 (Version 1)
Quarter: 2012Q4

REPORT INFORMATION
  Report Type: Report from Study
  Country: BR (occurrence: BR)
  Receive Date: 20121102
  Receipt Date: 20121102
  Transmission Date: 20130627
  Serious: Yes (Other)
  Sender: FDA-Public Use
  Company Number: BR-ROCHE-1151311

PATIENT
  Age: 67 Year
  Sex: Male
  Weight: 56.4 kg

DRUGS (3)
  1. BEVACIZUMAB [Suspect]
     Indication: RECTAL CANCER
     Route: 042
     Dates: start: 20110926, end: 20120926
  2. CAPECITABINE [Suspect]
     Indication: RECTAL CANCER
     Route: 065
     Dates: start: 20110926, end: 20120926
  3. OXALIPLATIN [Suspect]
     Indication: RECTAL CANCER
     Route: 065
     Dates: start: 20110926, end: 20120926

REACTIONS (1)
  - Disease progression [Unknown]
